FAERS Safety Report 9537296 (Version 1)
Quarter: 2013Q3

REPORT INFORMATION
  Report Type: Report from Study
  Country: MX (occurrence: MX)
  Receive Date: 20130919
  Receipt Date: 20130919
  Transmission Date: 20140515
  Serious: Yes (Other)
  Sender: FDA-Public Use
  Company Number: PHHY2013MX103990

PATIENT
  Age: 92 Year
  Sex: Male

DRUGS (3)
  1. ONBREZ [Suspect]
     Indication: EMPHYSEMA
     Dosage: 150 UG, BID
  2. ONBREZ [Suspect]
     Indication: OFF LABEL USE
  3. BUDESONIDE [Concomitant]
     Indication: EMPHYSEMA
     Dosage: UNK UKN, UNK

REACTIONS (4)
  - Hydrocephalus [Not Recovered/Not Resolved]
  - Fatigue [Not Recovered/Not Resolved]
  - Malaise [Not Recovered/Not Resolved]
  - Inappropriate schedule of drug administration [Unknown]
